FAERS Safety Report 8103263-4 (Version None)
Quarter: 2011Q4

REPORT INFORMATION
  Report Type: 
  Country: None (occurrence: None)
  Receive Date: 20111222
  Receipt Date: 20110914
  Transmission Date: 20120403
  Serious: Yes (Hospitalization)
  Sender: FDA-Public Use
  Company Number: UTC-010240

PATIENT
  Age: 55 Year
  Sex: Female
  Weight: 177.3 kg

DRUGS (6)
  1. TRACLEER [Concomitant]
  2. DIGOXIN [Concomitant]
  3. ADCIRCA [Concomitant]
  4. OXYGEN (OXYGEN) [Concomitant]
  5. TYVASO [Suspect]
     Indication: PULMONARY ARTERIAL HYPERTENSION
     Dosage: 72 MCG (18 MCG, 4 IN 1 D), INHALATION
     Route: 055
     Dates: start: 20100915
  6. DIURETICS (DIURETICS) [Concomitant]

REACTIONS (6)
  - MOUTH HAEMORRHAGE [None]
  - BACK PAIN [None]
  - PLATELET COUNT DECREASED [None]
  - INTERVERTEBRAL DISC PROTRUSION [None]
  - PNEUMONIA [None]
  - EPISTAXIS [None]
